FAERS Safety Report 15946871 (Version 1)
Quarter: 2019Q1

REPORT INFORMATION
  Report Type: Report from Study
  Country: ES (occurrence: ES)
  Receive Date: 20190211
  Receipt Date: 20190211
  Transmission Date: 20190417
  Serious: Yes (Other)
  Sender: FDA-Public Use
  Company Number: ES-TEVA-2019-ES-1009293

PATIENT
  Sex: Male

DRUGS (2)
  1. KENTERA 3.9 MG [Suspect]
     Active Substance: OXYBUTYNIN
     Indication: URINARY INCONTINENCE
     Dosage: 3.9 MILLIGRAM DAILY;
     Route: 061
     Dates: start: 20181211
  2. CYMBALTA [Concomitant]
     Active Substance: DULOXETINE HYDROCHLORIDE
     Route: 065

REACTIONS (1)
  - Pneumonia [Recovering/Resolving]
